FAERS Safety Report 20934307 (Version 1)
Quarter: 2022Q2

REPORT INFORMATION
  Report Type: Spontaneous
  Country: US (occurrence: None)
  Receive Date: 20220607
  Receipt Date: 20220607
  Transmission Date: 20220721
  Serious: Yes (Hospitalization)
  Sender: FDA-Public Use
  Company Number: None

PATIENT
  Age: 19 Year
  Sex: Female

DRUGS (21)
  1. BENLYSTA [Suspect]
     Active Substance: BELIMUMAB
     Route: 058
     Dates: start: 20220223
  2. ALBUTEROL AER HFA [Concomitant]
  3. ARNUITY ELP INH [Concomitant]
  4. AZITHROMYCIN [Concomitant]
     Active Substance: AZITHROMYCIN
  5. BENLYSTA [Concomitant]
     Active Substance: BELIMUMAB
  6. CLONIDINE DIS [Concomitant]
  7. DULOXETINE HYDROCHLORIDE [Concomitant]
     Active Substance: DULOXETINE HYDROCHLORIDE
  8. DULOXETINE HYDROCHLORIDE [Concomitant]
     Active Substance: DULOXETINE HYDROCHLORIDE
  9. GABAPENTIN [Concomitant]
     Active Substance: GABAPENTIN
  10. HYDROXYCHLOR TAB [Concomitant]
  11. HYDROXYZ HCL TAB [Concomitant]
  12. LAMOTRIGINE [Concomitant]
     Active Substance: LAMOTRIGINE
  13. LINZESS CAP [Concomitant]
  14. LORAZEPAM TAB [Concomitant]
  15. MIDODRINE TAB [Concomitant]
  16. OMEPRAZOLE TAB [Concomitant]
  17. ONDANSETRON TAB [Concomitant]
  18. PROMETHAZINE [Concomitant]
     Active Substance: PROMETHAZINE HYDROCHLORIDE
  19. PROPRANOLOL CAP [Concomitant]
  20. PROPRANOLOL TAB [Concomitant]
  21. TRULANCE TAB [Concomitant]

REACTIONS (2)
  - Infection [None]
  - Illness [None]

NARRATIVE: CASE EVENT DATE: 20220607
